FAERS Safety Report 14244051 (Version 2)
Quarter: 2018Q1

REPORT INFORMATION
  Report Type: Report from Study
  Country: US (occurrence: US)
  Receive Date: 20171201
  Receipt Date: 20180110
  Transmission Date: 20180508
  Serious: Yes (Hospitalization)
  Sender: FDA-Public Use
  Company Number: US-MYLANLABS-2017M1076169

PATIENT
  Sex: Female

DRUGS (2)
  1. CLOZAPINE. [Suspect]
     Active Substance: CLOZAPINE
     Indication: PRODUCT USED FOR UNKNOWN INDICATION
     Dosage: 400 MG, UNK
  2. CLOZAPINE. [Suspect]
     Active Substance: CLOZAPINE
     Dosage: 150 MG, UNK
     Dates: start: 2017

REACTIONS (6)
  - Suicidal ideation [Unknown]
  - Stress [Recovering/Resolving]
  - Hallucinations, mixed [Recovering/Resolving]
  - Sedation [Unknown]
  - Psychotic symptom [Unknown]
  - Weight increased [Unknown]

NARRATIVE: CASE EVENT DATE: 2017
